FAERS Safety Report 4416790-8 (Version None)
Quarter: 2004Q3

REPORT INFORMATION
  Report Type: 
  Country: None (occurrence: None)
  Receive Date: 20040802
  Receipt Date: 20040723
  Transmission Date: 20050211
  Serious: Yes (Death)
  Sender: FDA-Public Use
  Company Number: S04-USA-04387-01

PATIENT
  Age: 75 Year
  Sex: Female

DRUGS (7)
  1. NAMENDA [Suspect]
     Indication: DEMENTIA ALZHEIMER'S TYPE
     Dosage: 5 MG QD PO
     Route: 048
     Dates: start: 20040301, end: 20040101
  2. NAMENDA [Suspect]
     Indication: DEMENTIA ALZHEIMER'S TYPE
     Dosage: 10 MG QD PO
     Route: 048
     Dates: start: 20040101, end: 20040101
  3. NAMENDA [Suspect]
     Indication: DEMENTIA ALZHEIMER'S TYPE
     Dosage: 15 MG QD PO
     Route: 048
     Dates: start: 20040101, end: 20040401
  4. LORAZEPAM [Suspect]
     Indication: AGITATION
     Dates: end: 20040101
  5. LORAZEPAM [Suspect]
     Indication: AGITATION
     Dates: start: 20040101, end: 20040101
  6. SEROQUEL [Concomitant]
  7. ARICEPT [Concomitant]

REACTIONS (2)
  - CONVULSION [None]
  - SEDATION [None]
